FAERS Safety Report 11079551 (Version 1)
Quarter: 2015Q2

REPORT INFORMATION
  Report Type: Other
  Country: SE (occurrence: SE)
  Receive Date: 20150430
  Receipt Date: 20150430
  Transmission Date: 20150821
  Serious: Yes (Hospitalization)
  Sender: FDA-Public Use
  Company Number: SE-MYLANLABS-2015M1012992

PATIENT

DRUGS (3)
  1. NAPROXEN MYLAN 250 MG [Suspect]
     Active Substance: NAPROXEN
     Indication: PAIN IN EXTREMITY
     Dosage: 250 MG, (250 MG X 1-2  AS NECESSARY)
     Dates: start: 2012, end: 20150320
  2. TEGRETOL [Concomitant]
     Active Substance: CARBAMAZEPINE
     Dosage: UNK
  3. LATANOPROST. [Concomitant]
     Active Substance: LATANOPROST
     Dosage: UNK

REACTIONS (9)
  - Hypersensitivity [Recovered/Resolved with Sequelae]
  - Swollen tongue [Recovered/Resolved with Sequelae]
  - Vision blurred [Recovered/Resolved with Sequelae]
  - Lip swelling [Recovered/Resolved with Sequelae]
  - Skin reaction [Recovered/Resolved with Sequelae]
  - Swelling face [Recovered/Resolved with Sequelae]
  - Dysarthria [Recovered/Resolved with Sequelae]
  - Dizziness [Recovered/Resolved with Sequelae]
  - Eye swelling [Recovered/Resolved with Sequelae]

NARRATIVE: CASE EVENT DATE: 20150320
